FAERS Safety Report 18295183 (Version 1)
Quarter: 2020Q3

REPORT INFORMATION
  Report Type: Spontaneous
  Country: US (occurrence: US)
  Receive Date: 20200922
  Receipt Date: 20200922
  Transmission Date: 20201103
  Serious: No
  Sender: FDA-Public Use
  Company Number: None

PATIENT
  Sex: Female
  Weight: 59.8 kg

DRUGS (18)
  1. DEXAMETHASONE. [Concomitant]
     Active Substance: DEXAMETHASONE
  2. ONDANSETRON HCL [Concomitant]
     Active Substance: ONDANSETRON HYDROCHLORIDE
  3. OS?CAL ULTRA [Concomitant]
  4. PROLIA [Concomitant]
     Active Substance: DENOSUMAB
  5. VITAMIN D2 [Concomitant]
     Active Substance: ERGOCALCIFEROL
  6. ATORVASTATIN CALCIUM. [Concomitant]
     Active Substance: ATORVASTATIN CALCIUM
  7. COLACE [Concomitant]
     Active Substance: DOCUSATE SODIUM
  8. FERROUS SULFATE IRON [Concomitant]
  9. ISOSORBIDE MONONITRATE ER [Concomitant]
     Active Substance: ISOSORBIDE MONONITRATE
  10. LIDOCAINE. [Concomitant]
     Active Substance: LIDOCAINE
  11. MIDODRINE HCL [Concomitant]
     Active Substance: MIDODRINE HYDROCHLORIDE
  12. OMEPRAZOLE. [Concomitant]
     Active Substance: OMEPRAZOLE
  13. OXYCODONE HYDROCHLORIDE. [Concomitant]
     Active Substance: OXYCODONE HYDROCHLORIDE
  14. LORAZEPAM. [Concomitant]
     Active Substance: LORAZEPAM
  15. CAPECITABINE. [Suspect]
     Active Substance: CAPECITABINE
     Indication: BREAST CANCER
     Route: 048
     Dates: start: 20200806, end: 20200922
  16. ASPIRIN 81 [Concomitant]
     Active Substance: ASPIRIN
  17. FLUOXETINE HCL [Concomitant]
     Active Substance: FLUOXETINE HYDROCHLORIDE
  18. METOPROLOL SUCCINATE ER [Concomitant]
     Active Substance: METOPROLOL SUCCINATE

REACTIONS (1)
  - Hospice care [None]
